FAERS Safety Report 5714732-6 (Version None)
Quarter: 2008Q2

REPORT INFORMATION
  Report Type: 
  Country: None (occurrence: None)
  Receive Date: 20080423
  Receipt Date: 20040226
  Transmission Date: 20081010
  Serious: Yes (Death)
  Sender: FDA-Public Use
  Company Number: GB-ROCHE-360012

PATIENT
  Sex: Male

DRUGS (22)
  1. CAPECITABINE [Suspect]
     Dosage: GIVEN IN 2 DIVIDED DOSES FOR 24 WEEKS. GIVEN ON DAYS 1-14 EVERY THREE WEEKS.
     Route: 048
     Dates: start: 20031022, end: 20031223
  2. EPIRUBICIN [Suspect]
     Route: 040
     Dates: start: 20031022, end: 20031223
  3. CISPLATIN [Suspect]
     Dosage: GIVEN WITH HYDRATION FOR 8 CYCLES.
     Route: 042
     Dates: start: 20031022, end: 20031223
  4. CO-DANTHRAMER [Concomitant]
  5. CO-DANTHRAMER [Concomitant]
  6. MICROLAX [Concomitant]
  7. MICROLAX [Concomitant]
  8. MICROLAX [Concomitant]
  9. MICROLAX [Concomitant]
  10. MICROLAX [Concomitant]
  11. MICROLAX [Concomitant]
  12. MICROLAX [Concomitant]
  13. MST [Concomitant]
  14. VIOXX [Concomitant]
  15. ORAMORPH SR [Concomitant]
  16. LOSEC I.V. [Concomitant]
  17. WARFARIN SODIUM [Concomitant]
  18. CYCLIZINE [Concomitant]
  19. LANSOPRAZOLE [Concomitant]
  20. LEVOTHYROXINE SODIUM [Concomitant]
  21. TEMAZEPAM [Concomitant]
  22. CHLORPROMAZINE [Concomitant]

REACTIONS (1)
  - GASTROOESOPHAGEAL CANCER [None]
